FAERS Safety Report 6267661-6 (Version None)
Quarter: 2009Q3

REPORT INFORMATION
  Report Type: 
  Country: None (occurrence: None)
  Receive Date: 20090714
  Receipt Date: 20090708
  Transmission Date: 20100115
  Serious: Yes (Death, Hospitalization, Other)
  Sender: FDA-Public Use
  Company Number: PHHY2009TR27914

PATIENT
  Age: 57 Year
  Sex: Female

DRUGS (12)
  1. BASILIXIMAB [Suspect]
     Indication: RENAL TRANSPLANT
     Dosage: 20 MG
  2. MYCOPHENOLIC ACID [Suspect]
     Indication: RENAL TRANSPLANT
     Dosage: UNK
  3. METHYLPREDNISOLONE [Suspect]
     Indication: RENAL TRANSPLANT
     Dosage: 50 MG
  4. PREDNISOLONE [Suspect]
  5. MYCOPHENOLATE MOFETIL [Suspect]
     Indication: RENAL TRANSPLANT
     Dosage: 1 G/D
  6. ANTITHYMOCYTE IMMUNOGLOBULIN [Concomitant]
     Indication: KIDNEY TRANSPLANT REJECTION
     Dosage: 150 MG/DAY
  7. VALGANCICLOVIR HCL [Concomitant]
     Indication: ANTIVIRAL PROPHYLAXIS
     Dosage: 450 MG, BID
  8. SULFAMETHOXAZOLE AND TRIMETHOPRIM [Concomitant]
  9. FLUCONAZOLE [Concomitant]
  10. VANCOMYCIN [Concomitant]
  11. CASPOFUNGIN [Concomitant]
  12. MEROPENEM [Concomitant]

REACTIONS (13)
  - ANURIA [None]
  - BONE MARROW FAILURE [None]
  - CANDIDA SEPSIS [None]
  - DIARRHOEA [None]
  - FEBRILE NEUTROPENIA [None]
  - GENERAL PHYSICAL HEALTH DETERIORATION [None]
  - HAEMATOCHEZIA [None]
  - HAEMATOTOXICITY [None]
  - KIDNEY TRANSPLANT REJECTION [None]
  - MULTI-ORGAN FAILURE [None]
  - NAUSEA [None]
  - PANCYTOPENIA [None]
  - VOMITING [None]
